FAERS Safety Report 17156275 (Version 1)
Quarter: 2019Q4

REPORT INFORMATION
  Report Type: Spontaneous
  Country: GB (occurrence: GB)
  Receive Date: 20191216
  Receipt Date: 20191216
  Transmission Date: 20200122
  Serious: Yes (Congenital Anomaly)
  Sender: FDA-Public Use
  Company Number: GB-TEVA-761733ACC

PATIENT

DRUGS (7)
  1. VITAMIN D [Concomitant]
     Active Substance: VITAMIN D NOS
     Route: 064
  2. PROPRANOLOL [Concomitant]
     Active Substance: PROPRANOLOL HYDROCHLORIDE
     Route: 064
  3. FOLIC ACID. [Concomitant]
     Active Substance: FOLIC ACID
     Route: 064
  4. RIZATRIPTAN. [Concomitant]
     Active Substance: RIZATRIPTAN
     Route: 064
  5. TOPIRAMATE. [Suspect]
     Active Substance: TOPIRAMATE
     Indication: MIGRAINE
     Dosage: 200 MILLIGRAM DAILY;
     Route: 064
     Dates: start: 20160204
  6. INSULIN [Concomitant]
     Active Substance: INSULIN NOS
     Route: 064
  7. LAMOTRIGINE. [Concomitant]
     Active Substance: LAMOTRIGINE
     Route: 064

REACTIONS (9)
  - Hydronephrosis [Not Recovered/Not Resolved]
  - Small for dates baby [Unknown]
  - Fallot^s tetralogy [Not Recovered/Not Resolved]
  - Anal atresia [Not Recovered/Not Resolved]
  - Foetal exposure during pregnancy [Unknown]
  - Hypospadias [Not Recovered/Not Resolved]
  - Cleft lip and palate [Not Recovered/Not Resolved]
  - Placental insufficiency [Unknown]
  - Renal dysplasia [Not Recovered/Not Resolved]

NARRATIVE: CASE EVENT DATE: 20161014
